FAERS Safety Report 6043585-4 (Version None)
Quarter: 2009Q1

REPORT INFORMATION
  Report Type: 
  Country: None (occurrence: None)
  Receive Date: 20090115
  Receipt Date: 20090115
  Transmission Date: 20090719
  Serious: Yes (Hospitalization)
  Sender: FDA-Public Use
  Company Number: None

PATIENT
  Age: 14 Year
  Sex: Female
  Weight: 63.5036 kg

DRUGS (1)
  1. LARIAM [Suspect]
     Indication: MALARIA PROPHYLAXIS
     Dosage: 250 MG ONCE A WEEK PO
     Route: 048
     Dates: start: 20080805, end: 20080805

REACTIONS (5)
  - AGGRESSION [None]
  - PSYCHOTIC DISORDER [None]
  - RASH [None]
  - TINNITUS [None]
  - VISION BLURRED [None]
